FAERS Safety Report 4627706-3 (Version None)
Quarter: 2005Q2

REPORT INFORMATION
  Report Type: 
  Country: None (occurrence: None)
  Receive Date: 20050401
  Receipt Date: 20050316
  Transmission Date: 20051028
  Serious: Yes (Death, Hospitalization)
  Sender: FDA-Public Use
  Company Number: DSA_25169_2004

PATIENT
  Age: 81 Year
  Sex: Female

DRUGS (8)
  1. TEVETEN [Suspect]
     Indication: HYPERTENSION
     Dosage: 600 MG Q DAY PO
     Route: 048
     Dates: start: 20040506, end: 20040701
  2. ASPIRIN [Concomitant]
  3. TENORMIN [Concomitant]
  4. LIPITOR [Concomitant]
  5. NORVASC [Concomitant]
  6. DIDROCAL [Concomitant]
  7. ATENOLOL [Concomitant]
  8. PANTOLOC ^BYK GULDEN^ [Concomitant]

REACTIONS (1)
  - CEREBROVASCULAR ACCIDENT [None]
